FAERS Safety Report 20446338 (Version 9)
Quarter: 2022Q3

REPORT INFORMATION
  Report Type: Report from Study
  Country: FR (occurrence: FR)
  Receive Date: 20220208
  Receipt Date: 20220711
  Transmission Date: 20221027
  Serious: Yes (Death, Other)
  Sender: FDA-Public Use
  Company Number: FR-GILEAD-2022-0564726

PATIENT
  Age: 44 Year
  Sex: Female
  Weight: 71 kg

DRUGS (7)
  1. SACITUZUMAB GOVITECAN [Suspect]
     Active Substance: SACITUZUMAB GOVITECAN
     Indication: Breast cancer
     Dosage: 710 MG C2D8
     Route: 042
     Dates: start: 20220128, end: 20220128
  2. SACITUZUMAB GOVITECAN [Suspect]
     Active Substance: SACITUZUMAB GOVITECAN
     Dosage: 710 MG
     Route: 042
     Dates: start: 20220107, end: 20220107
  3. SACITUZUMAB GOVITECAN [Suspect]
     Active Substance: SACITUZUMAB GOVITECAN
     Dosage: 710 MG; 10 MG/KG; D1 AND D8(D9)
     Route: 042
     Dates: start: 20211215, end: 20211223
  4. SACITUZUMAB GOVITECAN [Suspect]
     Active Substance: SACITUZUMAB GOVITECAN
     Dosage: 670 MG C3
     Route: 042
  5. SACITUZUMAB GOVITECAN [Suspect]
     Active Substance: SACITUZUMAB GOVITECAN
     Dosage: UNK
     Route: 042
     Dates: end: 20220328
  6. OXYCODONE HYDROCHLORIDE [Concomitant]
     Active Substance: OXYCODONE HYDROCHLORIDE
     Indication: Pain
     Dosage: UNK
     Dates: start: 20211020
  7. METHYLPREDNISOLONE [Concomitant]
     Active Substance: METHYLPREDNISOLONE
     Dosage: UNK
     Dates: start: 20211020

REACTIONS (7)
  - Death [Fatal]
  - Agranulocytosis [Recovered/Resolved]
  - Hepatic cytolysis [Not Recovered/Not Resolved]
  - Dyspnoea [Unknown]
  - Asthenia [Unknown]
  - Inappropriate schedule of product administration [Recovered/Resolved]
  - Overdose [Unknown]

NARRATIVE: CASE EVENT DATE: 20211215
